FAERS Safety Report 5151283-4 (Version None)
Quarter: 2006Q4

REPORT INFORMATION
  Report Type: 
  Country: None (occurrence: None)
  Receive Date: 20061115
  Receipt Date: 20061025
  Transmission Date: 20070319
  Serious: Yes (Hospitalization)
  Sender: FDA-Public Use
  Company Number: 2006AP05187

PATIENT
  Age: 88 Year
  Sex: Male

DRUGS (4)
  1. CARBOCAIN [Suspect]
     Indication: EPIDURAL ANAESTHESIA
     Route: 008
     Dates: start: 20050531, end: 20050531
  2. CARBOCAIN [Suspect]
     Route: 008
     Dates: start: 20050531, end: 20050531
  3. ANAPEINE [Suspect]
     Indication: ANALGESIC EFFECT
     Route: 008
     Dates: start: 20050531, end: 20050531
  4. FENTANYL CITRATE [Concomitant]
     Indication: EPIDURAL ANAESTHESIA
     Route: 008

REACTIONS (2)
  - EXTRADURAL HAEMATOMA [None]
  - POST PROCEDURAL COMPLICATION [None]
